FAERS Safety Report 7729281-3 (Version None)
Quarter: 2011Q3

REPORT INFORMATION
  Report Type: 
  Country: None (occurrence: None)
  Receive Date: 20110906
  Receipt Date: 20110904
  Transmission Date: 20111222
  Serious: No
  Sender: FDA-Public Use
  Company Number: US-PFIZER INC-2011206283

PATIENT
  Sex: Female
  Weight: 88.44 kg

DRUGS (3)
  1. SYNTHROID [Concomitant]
     Indication: THYROID DISORDER
     Dosage: 50 MG, DAILY
     Route: 048
  2. CHANTIX [Suspect]
     Dosage: 0.5 MG, 2X/DAY
     Route: 048
     Dates: start: 20110101
  3. CHANTIX [Suspect]
     Indication: SMOKING CESSATION THERAPY
     Dosage: 0.5 MG, DAILY
     Route: 048
     Dates: start: 20110831, end: 20110101

REACTIONS (4)
  - NERVOUSNESS [None]
  - FEELING JITTERY [None]
  - DIZZINESS [None]
  - PARAESTHESIA [None]
